FAERS Safety Report 7832624-3 (Version None)
Quarter: 2011Q4

REPORT INFORMATION
  Report Type: 
  Country: None (occurrence: None)
  Receive Date: 20111024
  Receipt Date: 20111014
  Transmission Date: 20120403
  Serious: No
  Sender: FDA-Public Use
  Company Number: US-BIOGENIDEC-2011BI024494

PATIENT
  Age: 74 Year
  Sex: Male

DRUGS (1)
  1. TYSABRI [Suspect]
     Indication: MULTIPLE SCLEROSIS
     Route: 042
     Dates: start: 20080806, end: 20110602

REACTIONS (3)
  - DECUBITUS ULCER [None]
  - NUTRITIONAL CONDITION ABNORMAL [None]
  - STAPHYLOCOCCAL INFECTION [None]
